FAERS Safety Report 8438249-3 (Version None)
Quarter: 2012Q2

REPORT INFORMATION
  Report Type: 
  Country: None (occurrence: None)
  Receive Date: 20120614
  Receipt Date: 20120607
  Transmission Date: 20120825
  Serious: Yes (Hospitalization, Other)
  Sender: FDA-Public Use
  Company Number: US-MILLENNIUM PHARMACEUTICALS, INC.-2012-01257

PATIENT
  Sex: Male

DRUGS (3)
  1. VELCADE [Suspect]
     Dosage: 1 MG/M2, CYCLIC
     Route: 042
     Dates: start: 20110728, end: 20111216
  2. EVEROLIMUS [Suspect]
     Dosage: 5 MG, CYCLIC
     Route: 048
     Dates: start: 20110728, end: 20120127
  3. RITUXIMAB [Suspect]
     Dosage: 375 MG/M2, CYCLIC
     Route: 042
     Dates: start: 20110728, end: 20111118

REACTIONS (1)
  - PNEUMONIA FUNGAL [None]
